FAERS Safety Report 5496140-9 (Version None)
Quarter: 2007Q4

REPORT INFORMATION
  Report Type: 
  Country: None (occurrence: None)
  Receive Date: 20071025
  Receipt Date: 20071012
  Transmission Date: 20080405
  Serious: Yes (Hospitalization)
  Sender: FDA-Public Use
  Company Number: JP-AMGEN-US239235

PATIENT
  Sex: Female
  Weight: 47 kg

DRUGS (9)
  1. ENBREL [Suspect]
     Indication: RHEUMATOID ARTHRITIS
     Route: 058
     Dates: start: 20070207, end: 20070301
  2. ENBREL [Suspect]
     Route: 058
     Dates: start: 20070501, end: 20070501
  3. ENBREL [Suspect]
     Route: 058
     Dates: start: 20070528
  4. LOXONIN [Suspect]
     Indication: RHEUMATOID ARTHRITIS
     Route: 048
     Dates: end: 20070504
  5. METALCAPTASE [Suspect]
     Indication: RHEUMATOID ARTHRITIS
     Route: 048
     Dates: end: 20070504
  6. PREDNISOLONE [Concomitant]
     Indication: RHEUMATOID ARTHRITIS
     Route: 048
  7. NU-LOTAN [Concomitant]
     Dosage: TABLET; DOSE AND FREQUENCY NOT SPECIFIED
     Route: 048
  8. MUCOSTA [Concomitant]
     Route: 048
  9. FOSAMAX [Concomitant]
     Indication: OSTEOPOROSIS
     Route: 048

REACTIONS (2)
  - HERPES ZOSTER [None]
  - NEPHROTIC SYNDROME [None]
